FAERS Safety Report 11217528 (Version 1)
Quarter: 2015Q2

REPORT INFORMATION
  Report Type: Spontaneous
  Country: FR (occurrence: FR)
  Receive Date: 20150625
  Receipt Date: 20150625
  Transmission Date: 20150821
  Serious: Yes (Life-Threatening, Hospitalization)
  Sender: FDA-Public Use
  Company Number: PHHY2015FR071836

PATIENT
  Age: 47 Year
  Sex: Female

DRUGS (5)
  1. ALPRAZOLAM. [Suspect]
     Active Substance: ALPRAZOLAM
     Indication: DEPRESSION
     Dosage: 15 DF, ONE SINGLE INTAKE
     Route: 048
     Dates: start: 20131203
  2. SULFARLEM [Suspect]
     Active Substance: ANETHOLTRITHION
     Indication: DEPRESSION
     Dosage: 30 DF, ONCE/SINGLE
     Route: 048
     Dates: start: 20131203
  3. DULCOLAX [Suspect]
     Active Substance: BISACODYL OR DOCUSATE SODIUM
     Indication: DEPRESSION
     Dosage: 10 DF, ONCE/SINGLE
     Route: 048
     Dates: start: 20131203
  4. BACLOFEN. [Suspect]
     Active Substance: BACLOFEN
     Indication: DEPRESSION
     Dosage: 8 TABLETS ONE SINGLE INTAKE
     Route: 048
     Dates: start: 20131203
  5. VENLAFAXINE [Suspect]
     Active Substance: VENLAFAXINE HYDROCHLORIDE
     Indication: DEPRESSION
     Dosage: 6 DF, SINGLE INTAKE
     Route: 048
     Dates: start: 20131203, end: 20131203

REACTIONS (1)
  - Coma [Recovered/Resolved]

NARRATIVE: CASE EVENT DATE: 20131203
